FAERS Safety Report 5870553-5 (Version None)
Quarter: 2008Q3

REPORT INFORMATION
  Report Type: 
  Country: None (occurrence: None)
  Receive Date: 20080828
  Receipt Date: 20080820
  Transmission Date: 20090109
  Serious: Yes (Hospitalization)
  Sender: FDA-Public Use
  Company Number: DSA_21137_2001

PATIENT
  Sex: Male
  Weight: 78 kg

DRUGS (1)
  1. KEIMAX (KEIMAX) (NOT SPECIFIED) [Suspect]
     Indication: PNEUMONIA
     Dosage: 400 MG, ORAL
     Route: 048
     Dates: start: 19961130, end: 19961209

REACTIONS (6)
  - CHAPPED LIPS [None]
  - LIP DRY [None]
  - ORAL MUCOSA EROSION [None]
  - PERIODONTITIS [None]
  - STEVENS-JOHNSON SYNDROME [None]
  - TOXIC EPIDERMAL NECROLYSIS [None]
